FAERS Safety Report 18121741 (Version 5)
Quarter: 2021Q2

REPORT INFORMATION
  Report Type: Spontaneous
  Country: US (occurrence: US)
  Receive Date: 20200807
  Receipt Date: 20210601
  Transmission Date: 20210717
  Serious: No
  Sender: FDA-Public Use
  Company Number: US-SA-2020SA205208

PATIENT
  Age: 54 Year
  Sex: Female

DRUGS (2)
  1. DUPIXENT [Suspect]
     Active Substance: DUPILUMAB
     Indication: ASTHMA
     Dosage: 600 MG, 1X
     Route: 058
     Dates: start: 202005, end: 202005
  2. DUPIXENT [Suspect]
     Active Substance: DUPILUMAB
     Dosage: 300 MG, QOW
     Route: 058
     Dates: start: 202006

REACTIONS (11)
  - Peripheral swelling [Unknown]
  - Hordeolum [Unknown]
  - Palpitations [Unknown]
  - Hypersensitivity [Unknown]
  - Pain [Unknown]
  - Swelling of eyelid [Unknown]
  - Asthma [Unknown]
  - Joint swelling [Unknown]
  - Product use issue [Unknown]
  - Wheezing [Unknown]
  - Heart rate increased [Unknown]

NARRATIVE: CASE EVENT DATE: 2020
